FAERS Safety Report 6006369-9 (Version None)
Quarter: 2008Q4

REPORT INFORMATION
  Report Type: 
  Country: None (occurrence: None)
  Receive Date: 20081216
  Receipt Date: 20081216
  Transmission Date: 20090506
  Serious: Yes (Other)
  Sender: FDA-Public Use
  Company Number: None

PATIENT
  Sex: Female
  Weight: 118.18 kg

DRUGS (13)
  1. PROZAC [Suspect]
     Dosage: 40MG CAPSULE 40 MG QD ORAL
     Route: 048
     Dates: start: 20080616, end: 20081215
  2. CLOBETASOL PROPIONATE [Concomitant]
  3. DERMA-SMOOTHE/FS (FLUOCINOLONE) [Concomitant]
  4. IPRATROPIUM BROMIDE [Concomitant]
  5. KERALAC GEL (UREA GEL) [Concomitant]
  6. KERALAC NAIL GEL [Concomitant]
  7. LORAZEPAM [Concomitant]
  8. NIZORAL 2% SHAMPOO (KETOCONAZOLE 2% SHAMPOO) [Concomitant]
  9. OMEPRAZOLE [Concomitant]
  10. PYRIDIUM (PHENAZOPYRIDINE HCL) [Concomitant]
  11. SIMVASTATIN [Concomitant]
  12. SINGULAIR [Concomitant]
  13. VITAMIN D3 (CHOLECALCIFEROL) [Concomitant]

REACTIONS (1)
  - ABNORMAL DREAMS [None]
